FAERS Safety Report 5218527-1 (Version None)
Quarter: 2007Q1

REPORT INFORMATION
  Report Type: 
  Country: None (occurrence: None)
  Receive Date: 20061130
  Receipt Date: 20060710
  Transmission Date: 20070707
  Serious: Yes (Other)
  Sender: FDA-Public Use
  Company Number: US200606001385

PATIENT
  Age: 40 Year
  Sex: Male
  Weight: 99.8 kg

DRUGS (2)
  1. ZYPREXA [Suspect]
     Indication: DEPRESSION
     Dosage: SEE IMAGE
  2. PAXIL [Concomitant]

REACTIONS (2)
  - ADVERSE EVENT [None]
  - ANAPHYLACTIC REACTION [None]
